FAERS Safety Report 7379737-0 (Version None)
Quarter: 2011Q1

REPORT INFORMATION
  Report Type: 
  Country: None (occurrence: None)
  Receive Date: 20110329
  Receipt Date: 20110324
  Transmission Date: 20110831
  Serious: No
  Sender: FDA-Public Use
  Company Number: US-PFIZER INC-2011066484

PATIENT
  Sex: Male
  Weight: 108.84 kg

DRUGS (1)
  1. ADVIL CONGESTION RELIEF [Suspect]
     Indication: NASOPHARYNGITIS
     Dosage: UNK
     Route: 048
     Dates: start: 20110319, end: 20110323

REACTIONS (1)
  - DRUG INEFFECTIVE [None]
